FAERS Safety Report 8675625 (Version 3)
Quarter: 2012Q4

REPORT INFORMATION
  Report Type: 
  Country: SE (occurrence: SE)
  Receive Date: 20120720
  Receipt Date: 20120913
  Transmission Date: 20130627
  Serious: Yes (Other)
  Sender: FDA-Public Use
  Company Number: SE-GLAXOSMITHKLINE-B0804338A

PATIENT
  Sex: Female

DRUGS (4)
  1. SERETIDE DISKUS [Suspect]
     Indication: ASTHMA
     Dosage: 1U Twice per day
     Route: 055
     Dates: start: 20081120, end: 20120604
  2. SERETIDE [Suspect]
     Indication: ASTHMA
     Dosage: 1U Twice per day
     Route: 065
     Dates: start: 20051205, end: 20081120
  3. VENTOLIN [Concomitant]
     Indication: ASTHMA
     Dosage: .1MG As required
     Dates: start: 20061206
  4. AIROMIR [Concomitant]
     Indication: ASTHMA
     Dosage: .1MG As required
     Dates: start: 20051017, end: 20061206

REACTIONS (6)
  - Aggression [Unknown]
  - Mood swings [Not Recovered/Not Resolved]
  - Weight increased [Not Recovered/Not Resolved]
  - Sleep disorder [Recovered/Resolved]
  - Somnambulism [Unknown]
  - Ill-defined disorder [Recovering/Resolving]
